FAERS Safety Report 9618168 (Version 4)
Quarter: 2015Q4

REPORT INFORMATION
  Report Type: Spontaneous
  Country: JP (occurrence: JP)
  Receive Date: 20131014
  Receipt Date: 20151130
  Transmission Date: 20160305
  Serious: Yes (Death)
  Sender: FDA-Public Use
  Company Number: JP-ROCHE-1288593

PATIENT
  Age: 31 Week

DRUGS (1)
  1. LUCENTIS [Suspect]
     Active Substance: RANIBIZUMAB
     Indication: RETINOPATHY OF PREMATURITY
     Route: 050

REACTIONS (5)
  - Circulatory failure neonatal [Fatal]
  - Off label use [Unknown]
  - Liver abscess [Fatal]
  - Gastrointestinal obstruction [Fatal]
  - Drug administered to patient of inappropriate age [Unknown]
